FAERS Safety Report 4576082-3 (Version None)
Quarter: 2005Q1

REPORT INFORMATION
  Report Type: 
  Country: None (occurrence: None)
  Receive Date: 20050201
  Receipt Date: 20050201
  Transmission Date: 20050727
  Serious: No
  Sender: FDA-Public Use
  Company Number: None

PATIENT
  Sex: Female
  Weight: 64.4108 kg

DRUGS (1)
  1. ZICAM   NASAL GEL   (ZN) [Suspect]
     Dosage: ONE SPRAY   ONCE DAILY  NASAL
     Route: 045
     Dates: start: 20050115, end: 20050119

REACTIONS (2)
  - AGEUSIA [None]
  - ANOSMIA [None]
